FAERS Safety Report 11658212 (Version 1)
Quarter: 2015Q4

REPORT INFORMATION
  Report Type: Spontaneous
  Country: KR (occurrence: KR)
  Receive Date: 20151025
  Receipt Date: 20151025
  Transmission Date: 20160304
  Serious: Yes (Other)
  Sender: FDA-Public Use
  Company Number: KR-TEVA-602442ISR

PATIENT
  Age: 35 Year
  Sex: Female

DRUGS (2)
  1. CISPLATIN. [Suspect]
     Active Substance: CISPLATIN
     Indication: MALIGNANT NEOPLASM OF LACRIMAL DUCT
     Dosage: 80 MG/M2 OVER 1 HOUR ON DAY 1 EVERY 21 DAYS
     Route: 013
  2. DOXORUBICIN [Suspect]
     Active Substance: DOXORUBICIN
     Indication: MALIGNANT NEOPLASM OF LACRIMAL DUCT
     Dosage: 25 MG/M2 FOR 3 DAYS FROM DAY 1 EVERY 21 DAYS
     Route: 042

REACTIONS (9)
  - Necrosis [Not Recovered/Not Resolved]
  - Gingivitis [Unknown]
  - Mouth ulceration [Unknown]
  - Exposure during pregnancy [Unknown]
  - Hypoaesthesia [Unknown]
  - Neutropenia [Unknown]
  - Alopecia [Unknown]
  - VIIth nerve paralysis [Not Recovered/Not Resolved]
  - Asthenia [Unknown]
